FAERS Safety Report 5733700-1 (Version None)
Quarter: 2008Q2

REPORT INFORMATION
  Report Type: 
  Country: None (occurrence: None)
  Receive Date: 20080509
  Receipt Date: 20080421
  Transmission Date: 20081010
  Serious: No
  Sender: FDA-Public Use
  Company Number: A0722362A

PATIENT
  Age: 63 Year
  Sex: Female
  Weight: 63.6 kg

DRUGS (3)
  1. ALTABAX [Suspect]
     Route: 061
     Dates: start: 20080301
  2. MUPIROCIN [Suspect]
     Route: 061
  3. UNKNOWN [Concomitant]

REACTIONS (1)
  - APPLICATION SITE IRRITATION [None]
